FAERS Safety Report 11888213 (Version 1)
Quarter: 2016Q1

REPORT INFORMATION
  Report Type: Spontaneous
  Country: US (occurrence: US)
  Receive Date: 20160105
  Receipt Date: 20160105
  Transmission Date: 20160526
  Serious: Yes (Other)
  Sender: FDA-Public Use
  Company Number: US-AMGEN-USASP2015139621

PATIENT
  Age: 72 Year
  Sex: Male

DRUGS (1)
  1. ENBREL [Suspect]
     Active Substance: ETANERCEPT
     Indication: RHEUMATOID ARTHRITIS
     Dosage: 50 MG, QWK
     Route: 065
     Dates: end: 201408

REACTIONS (3)
  - Lung neoplasm malignant [Recovered/Resolved]
  - Knee arthroplasty [Unknown]
  - Hip arthroplasty [Unknown]

NARRATIVE: CASE EVENT DATE: 201408
